FAERS Safety Report 8561288-9 (Version None)
Quarter: 2012Q3

REPORT INFORMATION
  Report Type: 
  Country: None (occurrence: None)
  Receive Date: 20120802
  Receipt Date: 20120723
  Transmission Date: 20120928
  Serious: Yes (Hospitalization, Other)
  Sender: FDA-Public Use
  Company Number: US-009507513-1201USA00765

PATIENT

DRUGS (6)
  1. FOSAMAX [Suspect]
     Dosage: UNK
     Route: 048
     Dates: start: 20100122
  2. FOSAMAX [Suspect]
     Dosage: 70 MG, UNK
     Route: 048
     Dates: start: 20010514, end: 20040130
  3. FOSAMAX [Suspect]
     Indication: OSTEOPENIA
     Dosage: 10 MG, UNK
     Route: 048
     Dates: start: 19990126, end: 20010514
  4. FOSAMAX [Suspect]
     Dosage: 70 MG, UNK
     Route: 048
     Dates: start: 20040422, end: 20080222
  5. FOSAMAX [Suspect]
     Dosage: 70 MG, UNK
     Route: 048
     Dates: start: 20080222, end: 20100222
  6. FOSAMAX [Suspect]
     Dosage: 70 MG, UNK
     Route: 048
     Dates: start: 20040226, end: 20040422

REACTIONS (26)
  - FEMUR FRACTURE [None]
  - COLITIS ISCHAEMIC [None]
  - FALL [None]
  - CONSTIPATION [None]
  - VITAMIN D DEFICIENCY [None]
  - STRESS FRACTURE [None]
  - HIATUS HERNIA [None]
  - RIB FRACTURE [None]
  - CONTUSION [None]
  - BACK PAIN [None]
  - ANAEMIA POSTOPERATIVE [None]
  - BONE DISORDER [None]
  - PAIN IN EXTREMITY [None]
  - ARTHROPATHY [None]
  - ARTHRALGIA [None]
  - ROTATOR CUFF SYNDROME [None]
  - CALCIUM DEFICIENCY [None]
  - OEDEMA PERIPHERAL [None]
  - DRY EYE [None]
  - LOW TURNOVER OSTEOPATHY [None]
  - TACHYCARDIA [None]
  - OVARIAN CYST [None]
  - GASTRIC DISORDER [None]
  - OESOPHAGEAL DISORDER [None]
  - ARTHRITIS [None]
  - OSTEOARTHRITIS [None]
